FAERS Safety Report 24867437 (Version 1)
Quarter: 2025Q1

REPORT INFORMATION
  Report Type: Report from Study
  Country: US (occurrence: US)
  Receive Date: 20250121
  Receipt Date: 20250121
  Transmission Date: 20250408
  Serious: Yes (Death)
  Sender: BAYER HEALTHCARE LLC
  Company Number: US-BAYER-2025A006271

PATIENT
  Age: 20 Year
  Sex: Male

DRUGS (9)
  1. CHLORPHENIRAMINE MALEATE [Interacting]
     Active Substance: CHLORPHENIRAMINE MALEATE
  2. ARIPIPRAZOLE [Interacting]
     Active Substance: ARIPIPRAZOLE
  3. BENZTROPINE [Interacting]
     Active Substance: BENZTROPINE
  4. DEXTROMETHORPHAN HYDROBROMIDE [Interacting]
     Active Substance: DEXTROMETHORPHAN HYDROBROMIDE
  5. ESCITALOPRAM [Interacting]
     Active Substance: ESCITALOPRAM OXALATE
  6. CANNABIS SATIVA SUBSP. INDICA TOP [Interacting]
     Active Substance: CANNABIS SATIVA SUBSP. INDICA TOP
  7. NICOTINE [Interacting]
     Active Substance: NICOTINE
  8. UNSPECIFIED INGREDIENT [Interacting]
     Active Substance: UNSPECIFIED INGREDIENT
  9. PHENCYCLIDINE [Interacting]
     Active Substance: PHENCYCLIDINE

REACTIONS (13)
  - Confusional state [Fatal]
  - Dysarthria [Fatal]
  - Flushing [Fatal]
  - Hyperhidrosis [Fatal]
  - Hyperreflexia [Fatal]
  - Lethargy [Fatal]
  - Muscle rigidity [Fatal]
  - Pyrexia [Fatal]
  - Serotonin syndrome [Fatal]
  - Sinus tachycardia [Fatal]
  - Tremor [Fatal]
  - Overdose [Fatal]
  - Drug interaction [Fatal]
